FAERS Safety Report 24611683 (Version 1)
Quarter: 2024Q4

REPORT INFORMATION
  Report Type: Spontaneous
  Country: CN (occurrence: CN)
  Receive Date: 20241113
  Receipt Date: 20241113
  Transmission Date: 20250115
  Serious: Yes (Hospitalization)
  Sender: ENDO
  Company Number: CN-ENDO USA, INC.-2024-050614

PATIENT
  Age: 29 Year
  Sex: Male

DRUGS (1)
  1. ETOMIDATE [Suspect]
     Active Substance: ETOMIDATE
     Indication: Product used for unknown indication
     Dosage: UNK UNKNOWN, QOD (IN 2.0 ML OF E-LIQUID IN 1 E-CIGARETTE EVERY TWO DAYS)
     Dates: start: 2023

REACTIONS (4)
  - Hyperplasia adrenal [Recovered/Resolved]
  - Adrenal insufficiency [Recovered/Resolved]
  - Drug abuse [Unknown]
  - Hypokalaemia [Recovered/Resolved]

NARRATIVE: CASE EVENT DATE: 20230101
